FAERS Safety Report 5190447-0 (Version None)
Quarter: 2006Q4

REPORT INFORMATION
  Report Type: 
  Country: None (occurrence: None)
  Receive Date: 20061222
  Receipt Date: 20061213
  Transmission Date: 20070319
  Serious: Yes (Death, Hospitalization)
  Sender: FDA-Public Use
  Company Number: NL-ROCHE-474974

PATIENT
  Age: 66 Year
  Sex: Male

DRUGS (4)
  1. CAPECITABINE [Suspect]
     Dosage: 1000 MG/M2 BID DAYS 1 TO 14  (1250 CYCLE 7 ONWARDS) AS PER PROTOCOL.
     Route: 048
     Dates: start: 20060330
  2. BEVACIZUMAB [Suspect]
     Dosage: GIVEN ON DAY 1 AS PER PROTOCOL.
     Route: 042
     Dates: start: 20060330
  3. OXALIPLATIN [Suspect]
     Dosage: GIVEN ON DAY 1 AS PER PROTOCOL.
     Route: 042
     Dates: start: 20060330
  4. CETUXIMAB [Suspect]
     Dosage: 400 MG/M2 LOADING DOSE DAY1 CYCLE1, THEN 250 MG/M2 WEEKLY THEREAFTER (NORMAL CYCLE = DAYS 1, 8, 15)+
     Route: 042
     Dates: start: 20060330

REACTIONS (5)
  - ACTIVATED PARTIAL THROMBOPLASTIN TIME PROLONGED [None]
  - BLOOD BILIRUBIN INCREASED [None]
  - BLOOD LACTATE DEHYDROGENASE INCREASED [None]
  - PROTHROMBIN TIME PROLONGED [None]
  - THROMBOTIC THROMBOCYTOPENIC PURPURA [None]
